FAERS Safety Report 21616370 (Version 3)
Quarter: 2023Q1

REPORT INFORMATION
  Report Type: Report from Study
  Country: US (occurrence: US)
  Receive Date: 20221118
  Receipt Date: 20230218
  Transmission Date: 20230418
  Serious: Yes (Other)
  Sender: FDA-Public Use
  Company Number: US-ABBVIE-4205935

PATIENT
  Age: 76 Year
  Sex: Female

DRUGS (1)
  1. IMBRUVICA [Suspect]
     Active Substance: IBRUTINIB
     Indication: Chronic lymphocytic leukaemia
     Route: 048
     Dates: start: 20210424

REACTIONS (5)
  - Basal cell carcinoma [Recovered/Resolved]
  - Post procedural swelling [Not Recovered/Not Resolved]
  - Dry eye [Recovering/Resolving]
  - Vision blurred [Recovering/Resolving]
  - Eye infection [Unknown]

NARRATIVE: CASE EVENT DATE: 20221101
